FAERS Safety Report 4511246-6 (Version None)
Quarter: 2004Q4

REPORT INFORMATION
  Report Type: 
  Country: None (occurrence: None)
  Receive Date: 20041122
  Receipt Date: 20041122
  Transmission Date: 20050328
  Serious: Yes (Life-Threatening)
  Sender: FDA-Public Use
  Company Number: None

PATIENT
  Sex: Female

DRUGS (6)
  1. FERRLECIT [Suspect]
     Indication: ANAEMIA
     Dosage: 125MG  HOUR INTRAVENOUS
     Route: 042
     Dates: start: 20041119, end: 20041119
  2. LASIX [Concomitant]
  3. METOPROLOL [Concomitant]
  4. DIGOXIN [Concomitant]
  5. POTASSIUM CHLORIDE [Concomitant]
  6. WARFARIN SODIUM [Concomitant]

REACTIONS (5)
  - CARDIAC DISORDER [None]
  - DYSKINESIA [None]
  - HALLUCINATION [None]
  - NERVOUS SYSTEM DISORDER [None]
  - VENTRICULAR EXTRASYSTOLES [None]
